FAERS Safety Report 21795857 (Version 2)
Quarter: 2023Q1

REPORT INFORMATION
  Report Type: Spontaneous
  Country: US (occurrence: US)
  Receive Date: 20221229
  Receipt Date: 20230110
  Transmission Date: 20230418
  Serious: Yes (Life-Threatening, Hospitalization, Congenital Anomaly)
  Sender: FDA-Public Use
  Company Number: US-TEVA-2022-US-2839618

PATIENT
  Sex: Male

DRUGS (7)
  1. DEXAMETHASONE [Suspect]
     Active Substance: DEXAMETHASONE
     Indication: Hypoventilation neonatal
     Dosage: RECEIVED 2 DOSES ON DAYS OF LIFE 31 AT 0.05 MG/KG/DOSE , 0.05 MG/KG/DOSE AT 12 HOURS
     Route: 065
  2. DEXAMETHASONE [Suspect]
     Active Substance: DEXAMETHASONE
     Dosage: 0.5 MG/KG/DOSE
     Route: 065
  3. DEXAMETHASONE [Suspect]
     Active Substance: DEXAMETHASONE
     Dosage: 0.25 MG/KG/DOSE
     Route: 065
  4. INDOMETHACIN [Concomitant]
     Active Substance: INDOMETHACIN
     Indication: Product used for unknown indication
     Dosage: .4 MG/KG DAILY; 3 DOSES EVERY 12 HOURS , 0.2 MG/KG
     Route: 065
  5. GENTAMICIN [Concomitant]
     Active Substance: GENTAMICIN
     Indication: Antibiotic therapy
     Dosage: 0.2 MG/KG , 3 DOSES EVERY 12 HOURS
     Route: 065
  6. CAFFEINE [Concomitant]
     Active Substance: CAFFEINE
     Indication: Product used for unknown indication
     Route: 065
  7. NAFCILLIN [Concomitant]
     Active Substance: NAFCILLIN SODIUM
     Indication: Antibiotic therapy
     Route: 065

REACTIONS (4)
  - Hypertrophic cardiomyopathy [Recovered/Resolved]
  - Cardiogenic shock [Recovered/Resolved]
  - Cardiac failure acute [Recovered/Resolved]
  - Hypertension [Unknown]
